FAERS Safety Report 4302327-0 (Version None)
Quarter: 2004Q1

REPORT INFORMATION
  Report Type: 
  Country: None (occurrence: None)
  Receive Date: 20040126
  Receipt Date: 20031021
  Transmission Date: 20041129
  Serious: No
  Sender: FDA-Public Use
  Company Number: USA031049007

PATIENT
  Age: 55 Year
  Sex: Female
  Weight: 64 kg

DRUGS (15)
  1. STRATTERA [Suspect]
     Indication: ATTENTION DEFICIT/HYPERACTIVITY DISORDER
     Dosage: 40 MG/IN THE MORNING
     Dates: start: 20030930
  2. DURATUSS [Concomitant]
  3. ZYRTEC [Concomitant]
  4. ZOCOR [Concomitant]
  5. VITAMIN E [Concomitant]
  6. SLO-MAG (MAGNESIUM CHLORIDE ANHYDROUS) [Concomitant]
  7. MULTIVITAMIN [Concomitant]
  8. ALOCRIL (NEDOCROMIL SODIUM) [Concomitant]
  9. ACULAR [Concomitant]
  10. FLONASE [Concomitant]
  11. PREVACID [Concomitant]
  12. FISH OIL [Concomitant]
  13. CALCIUM [Concomitant]
  14. ASTELIN [Concomitant]
  15. PAXIL [Concomitant]

REACTIONS (3)
  - ANORGASMIA [None]
  - INCREASED APPETITE [None]
  - SOMNOLENCE [None]
